FAERS Safety Report 7050446-0 (Version None)
Quarter: 2010Q4

REPORT INFORMATION
  Report Type: 
  Country: None (occurrence: None)
  Receive Date: 20101018
  Receipt Date: 20101011
  Transmission Date: 20110411
  Serious: Yes (Hospitalization)
  Sender: FDA-Public Use
  Company Number: PHHO2010IT15520

PATIENT
  Sex: Male
  Weight: 59.7 kg

DRUGS (2)
  1. CERTICAN [Suspect]
     Indication: RENAL TRANSPLANT
     Dosage: 1.75 MG DAILY
     Route: 048
  2. NEORAL [Suspect]
     Indication: RENAL TRANSPLANT
     Dosage: 40 MG, BID
     Route: 048

REACTIONS (1)
  - PROTEINURIA [None]
